FAERS Safety Report 13901894 (Version 1)
Quarter: 2017Q3

REPORT INFORMATION
  Report Type: Spontaneous
  Country: US (occurrence: US)
  Receive Date: 20170824
  Receipt Date: 20170824
  Transmission Date: 20171127
  Serious: No
  Sender: FDA-Public Use
  Company Number: US-ROCHE-1125387

PATIENT
  Age: 52 Year
  Sex: Female

DRUGS (2)
  1. HERCEPTIN [Suspect]
     Active Substance: TRASTUZUMAB
     Indication: BREAST CANCER
     Route: 065
  2. NAVELBINE [Concomitant]
     Active Substance: VINORELBINE TARTRATE

REACTIONS (4)
  - Drug ineffective [Unknown]
  - Metastases to central nervous system [Unknown]
  - Lung disorder [Unknown]
  - Pneumonia [Unknown]
